FAERS Safety Report 19711347 (Version 1)
Quarter: 2021Q3

REPORT INFORMATION
  Report Type: Spontaneous
  Country: US (occurrence: US)
  Receive Date: 20210817
  Receipt Date: 20210817
  Transmission Date: 20211014
  Serious: No
  Sender: FDA-Public Use
  Company Number: US-GLAND PHARMA LIMITED-2019US011304

PATIENT
  Sex: Female

DRUGS (1)
  1. ROCURONIUM BROMIDE. [Suspect]
     Active Substance: ROCURONIUM BROMIDE
     Indication: SEDATION
     Dosage: UNK MG/KG
     Route: 042

REACTIONS (3)
  - Drug ineffective [Unknown]
  - Off label use [Unknown]
  - Product complaint [Unknown]
